FAERS Safety Report 9493143 (Version 1)
Quarter: 2013Q3

REPORT INFORMATION
  Report Type: Spontaneous
  Country: US (occurrence: US)
  Receive Date: 20130902
  Receipt Date: 20130902
  Transmission Date: 20140515
  Serious: No
  Sender: FDA-Public Use
  Company Number: US-B.I. PHARMACEUTICALS,INC./RIDGEFIELD-2013-BI-25845BP

PATIENT
  Age: 43 Year
  Sex: Female

DRUGS (9)
  1. MIRAPEX [Suspect]
     Indication: RESTLESS LEGS SYNDROME
     Dosage: 0.25 MG
     Route: 048
     Dates: start: 201201, end: 201308
  2. LORATADINE [Concomitant]
  3. MELOXICAM [Concomitant]
  4. CYCLOBENZAPRINE [Concomitant]
  5. ACCURETIC [Concomitant]
  6. ADVAIR [Concomitant]
  7. SYNTHROID [Concomitant]
  8. ALBUTEROL [Concomitant]
  9. LIDODERM [Concomitant]

REACTIONS (1)
  - Pain [Not Recovered/Not Resolved]
